FAERS Safety Report 5728755-4 (Version None)
Quarter: 2008Q2

REPORT INFORMATION
  Report Type: 
  Country: None (occurrence: None)
  Receive Date: 20080506
  Receipt Date: 20080428
  Transmission Date: 20081010
  Serious: Yes (Other)
  Sender: FDA-Public Use
  Company Number: B0510930A

PATIENT
  Sex: Male

DRUGS (1)
  1. ARIXTRA [Suspect]
     Dosage: 7.5MG SINGLE DOSE
     Route: 058
     Dates: start: 20080130, end: 20080130

REACTIONS (2)
  - INCORRECT DOSE ADMINISTERED [None]
  - THROMBOSIS [None]
